FAERS Safety Report 21296149 (Version 4)
Quarter: 2022Q4

REPORT INFORMATION
  Report Type: Spontaneous
  Country: JP (occurrence: JP)
  Receive Date: 20220906
  Receipt Date: 20221209
  Transmission Date: 20230112
  Serious: Yes (Hospitalization, Other)
  Sender: FDA-Public Use
  Company Number: JP-ONO-2022JP021678

PATIENT
  Age: 9 Decade
  Sex: Male

DRUGS (1)
  1. OPDIVO [Suspect]
     Active Substance: NIVOLUMAB
     Indication: Oesophageal carcinoma
     Route: 041
     Dates: start: 20220614, end: 20220614

REACTIONS (4)
  - Cerebral infarction [Unknown]
  - Pneumonia bacterial [Unknown]
  - Radiation pneumonitis [Recovering/Resolving]
  - Pyrexia [Unknown]
